FAERS Safety Report 17659121 (Version 2)
Quarter: 2020Q2

REPORT INFORMATION
  Report Type: Report from Study
  Country: None (occurrence: US)
  Receive Date: 20200413
  Receipt Date: 20200511
  Transmission Date: 20200713
  Serious: Yes (Hospitalization)
  Sender: FDA-Public Use
  Company Number: US-ABBVIE-20P-163-3359097-00

PATIENT
  Sex: Male

DRUGS (3)
  1. IMBRUVICA [Suspect]
     Active Substance: IBRUTINIB
     Route: 048
  2. IMBRUVICA [Suspect]
     Active Substance: IBRUTINIB
     Indication: CHRONIC LYMPHOCYTIC LEUKAEMIA
     Route: 048
  3. DILTIAZEM. [Concomitant]
     Active Substance: DILTIAZEM
     Indication: ARRHYTHMIA

REACTIONS (9)
  - Depression [Recovering/Resolving]
  - Dyspepsia [Recovering/Resolving]
  - Hyperchlorhydria [Unknown]
  - Muscle atrophy [Recovering/Resolving]
  - Therapeutic response unexpected [Recovering/Resolving]
  - Chronic obstructive pulmonary disease [Unknown]
  - Arrhythmia [Unknown]
  - Blood pressure increased [Unknown]
  - Anxiety [Unknown]
